FAERS Safety Report 5913568-0 (Version None)
Quarter: 2008Q4

REPORT INFORMATION
  Report Type: 
  Country: None (occurrence: None)
  Receive Date: 20081007
  Receipt Date: 20080926
  Transmission Date: 20090506
  Serious: Yes (Hospitalization)
  Sender: FDA-Public Use
  Company Number: TCI2008A04934

PATIENT
  Age: 6 Decade
  Sex: Male

DRUGS (2)
  1. ACTOS [Suspect]
     Indication: DIABETES MELLITUS
     Route: 048
  2. AMARYL [Suspect]
     Route: 048

REACTIONS (1)
  - AGRANULOCYTOSIS [None]
